FAERS Safety Report 13390371 (Version 1)
Quarter: 2017Q1

REPORT INFORMATION
  Report Type: Spontaneous
  Country: US (occurrence: US)
  Receive Date: 20170331
  Receipt Date: 20170331
  Transmission Date: 20170429
  Serious: Yes (Other)
  Sender: FDA-Public Use
  Company Number: US-PFIZER INC-2017136799

PATIENT
  Age: 39 Year
  Sex: Female
  Weight: 104 kg

DRUGS (1)
  1. GABAPENTIN. [Suspect]
     Active Substance: GABAPENTIN
     Indication: PAIN
     Dosage: UNK
     Dates: start: 2013

REACTIONS (9)
  - Suicidal ideation [Unknown]
  - Impaired work ability [Unknown]
  - Speech disorder [Unknown]
  - Condition aggravated [Unknown]
  - Drug ineffective for unapproved indication [Unknown]
  - Activities of daily living impaired [Unknown]
  - Depression [Unknown]
  - Impaired driving ability [Unknown]
  - Anxiety [Unknown]
